FAERS Safety Report 26057197 (Version 1)
Quarter: 2025Q4

REPORT INFORMATION
  Report Type: Spontaneous
  Country: US (occurrence: US)
  Receive Date: 20251118
  Receipt Date: 20251118
  Transmission Date: 20260119
  Serious: No
  Sender: RANBAXY
  Company Number: US-MIMS-SUN-2025-USA-53859

PATIENT
  Age: 13 Year
  Sex: Female

DRUGS (1)
  1. CETIRIZINE HYDROCHLORIDE\PSEUDOEPHEDRINE HYDROCHLORIDE [Suspect]
     Active Substance: CETIRIZINE HYDROCHLORIDE\PSEUDOEPHEDRINE HYDROCHLORIDE
     Indication: Seasonal allergy
     Dosage: UNK UNK, BID
     Route: 065

REACTIONS (3)
  - Drug ineffective [Unknown]
  - Extra dose administered [Unknown]
  - Therapy cessation [Unknown]
